FAERS Safety Report 19815815 (Version 1)
Quarter: 2021Q3

REPORT INFORMATION
  Report Type: Spontaneous
  Country: US (occurrence: US)
  Receive Date: 20210910
  Receipt Date: 20210910
  Transmission Date: 20211014
  Serious: Yes (Hospitalization)
  Sender: FDA-Public Use
  Company Number: US-JUBILANT CADISTA PHARMACEUTICALS-2021JUB00264

PATIENT
  Age: 72 Year
  Sex: Male

DRUGS (4)
  1. PREDNISONE. [Suspect]
     Active Substance: PREDNISONE
     Dosage: 5 MG
     Route: 065
  2. PREDNISONE. [Suspect]
     Active Substance: PREDNISONE
     Dosage: 10 MG, 2X/DAY
     Route: 065
  3. RIFAMPIN. [Suspect]
     Active Substance: RIFAMPIN
     Indication: LATENT TUBERCULOSIS
     Route: 065
  4. PREDNISONE. [Suspect]
     Active Substance: PREDNISONE
     Dosage: 15 MG
     Route: 065

REACTIONS (2)
  - Adrenocortical insufficiency acute [Recovered/Resolved]
  - Drug interaction [Recovered/Resolved]
